FAERS Safety Report 10499694 (Version 1)
Quarter: 2014Q4

REPORT INFORMATION
  Report Type: Spontaneous
  Country: US (occurrence: US)
  Receive Date: 20141006
  Receipt Date: 20141006
  Transmission Date: 20150528
  Serious: No
  Sender: FDA-Public Use
  Company Number: US-AMGEN INC.-USASP2014067623

PATIENT
  Age: 64 Year
  Sex: Female

DRUGS (1)
  1. PROLIA [Suspect]
     Active Substance: DENOSUMAB
     Indication: OSTEOPOROSIS POSTMENOPAUSAL
     Dosage: UNK
     Route: 065

REACTIONS (7)
  - Asthenia [Unknown]
  - Asthenopia [Unknown]
  - Headache [Not Recovered/Not Resolved]
  - Somnolence [Unknown]
  - Depression [Unknown]
  - Vision blurred [Unknown]
  - Fatigue [Unknown]
